FAERS Safety Report 14101105 (Version 2)
Quarter: 2017Q4

REPORT INFORMATION
  Report Type: Spontaneous
  Country: US (occurrence: US)
  Receive Date: 20171018
  Receipt Date: 20171027
  Transmission Date: 20180321
  Serious: Yes (Other)
  Sender: FDA-Public Use
  Company Number: US-AMGEN-USASP2017154869

PATIENT
  Age: 57 Year
  Sex: Male

DRUGS (5)
  1. ENBREL [Suspect]
     Active Substance: ETANERCEPT
     Dosage: 25 MG, 2 TIMES/WK
     Route: 058
     Dates: start: 2017, end: 2017
  2. ENBREL [Suspect]
     Active Substance: ETANERCEPT
     Indication: PSORIATIC ARTHROPATHY
     Dosage: 50 MG, QWK
     Route: 065
     Dates: start: 2007
  3. TESTOSTERONE. [Suspect]
     Active Substance: TESTOSTERONE
     Indication: BLOOD TESTOSTERONE ABNORMAL
     Dosage: UNK
     Route: 065
  4. ENBREL [Suspect]
     Active Substance: ETANERCEPT
     Indication: PSORIASIS
     Dosage: 25 MG, QWK
     Route: 065
  5. ENBREL [Suspect]
     Active Substance: ETANERCEPT
     Dosage: 50 MG, QWK
     Route: 065
     Dates: start: 201708

REACTIONS (9)
  - Psoriatic arthropathy [Not Recovered/Not Resolved]
  - Blood testosterone decreased [Not Recovered/Not Resolved]
  - Product storage error [Unknown]
  - Off label use [Unknown]
  - Tendon disorder [Not Recovered/Not Resolved]
  - Spinal disorder [Not Recovered/Not Resolved]
  - Tendon injury [Not Recovered/Not Resolved]
  - Drug effect decreased [Unknown]
  - Bursitis [Not Recovered/Not Resolved]

NARRATIVE: CASE EVENT DATE: 2017
